FAERS Safety Report 11286062 (Version 1)
Quarter: 2015Q3

REPORT INFORMATION
  Report Type: Spontaneous
  Country: US (occurrence: US)
  Receive Date: 20150721
  Receipt Date: 20150721
  Transmission Date: 20151125
  Serious: No
  Sender: FDA-Public Use
  Company Number: US-UNITED THERAPEUTICS-UNT-2015-001409

PATIENT
  Age: 70 Year
  Sex: Female
  Weight: 68.93 kg

DRUGS (5)
  1. SILDENAFIL. [Concomitant]
     Active Substance: SILDENAFIL
     Indication: PRODUCT USED FOR UNKNOWN INDICATION
  2. ORENITRAM [Suspect]
     Active Substance: TREPROSTINIL
     Indication: PULMONARY ARTERIAL HYPERTENSION
     Dosage: 13 MG, TID
     Route: 048
     Dates: start: 20141103
  3. ORENITRAM [Suspect]
     Active Substance: TREPROSTINIL
     Dosage: UNK
     Dates: start: 20141103
  4. REVATIO [Concomitant]
     Active Substance: SILDENAFIL CITRATE
     Indication: PRODUCT USED FOR UNKNOWN INDICATION
  5. WARFARIN [Concomitant]
     Active Substance: WARFARIN
     Indication: PRODUCT USED FOR UNKNOWN INDICATION

REACTIONS (9)
  - Decreased appetite [Recovered/Resolved]
  - Pain in extremity [Unknown]
  - Adverse event [Unknown]
  - Road traffic accident [Unknown]
  - Abdominal pain upper [Unknown]
  - Chest pain [Unknown]
  - Weight decreased [Recovered/Resolved]
  - Musculoskeletal discomfort [Unknown]
  - Limb discomfort [Unknown]

NARRATIVE: CASE EVENT DATE: 201412
